FAERS Safety Report 7963416-2 (Version None)
Quarter: 2011Q4

REPORT INFORMATION
  Report Type: 
  Country: None (occurrence: None)
  Receive Date: 20111205
  Receipt Date: 20111124
  Transmission Date: 20120403
  Serious: Yes (Death)
  Sender: FDA-Public Use
  Company Number: MSTR-NO-1111S-0260

PATIENT
  Age: 50 Year
  Sex: Male

DRUGS (1)
  1. METASTRON [Suspect]
     Indication: METASTATIC PAIN
     Dosage: 120 MBQ, SINGLE DOSE, INTRAVENOUS
     Route: 042
     Dates: start: 20111026, end: 20111026

REACTIONS (1)
  - SEPTIC SHOCK [None]
